FAERS Safety Report 7041745-7 (Version None)
Quarter: 2010Q4

REPORT INFORMATION
  Report Type: 
  Country: None (occurrence: None)
  Receive Date: 20101013
  Receipt Date: 20091113
  Transmission Date: 20110411
  Serious: No
  Sender: FDA-Public Use
  Company Number: US-ASTRAZENECA-2009SE26414

PATIENT
  Age: 84 Year
  Sex: Female

DRUGS (2)
  1. SYMBICORT [Suspect]
     Indication: CHRONIC OBSTRUCTIVE PULMONARY DISEASE
     Dosage: 2 PUFFS IN THE MORNING AND 2 PUFFS AT NIGHT
     Route: 055
  2. SYMBICORT [Suspect]
     Dosage: 1 PUFF IN THE MORNING AND 1 PUFF AT NIGHT
     Route: 055

REACTIONS (3)
  - ASTHENOPIA [None]
  - INCORRECT DOSE ADMINISTERED [None]
  - VISION BLURRED [None]
